FAERS Safety Report 19601365 (Version 1)
Quarter: 2021Q3

REPORT INFORMATION
  Report Type: Spontaneous
  Country: DE (occurrence: DE)
  Receive Date: 20210723
  Receipt Date: 20210723
  Transmission Date: 20211014
  Serious: Yes (Other)
  Sender: FDA-Public Use
  Company Number: DE-TEVA-2021-DE-1933901

PATIENT
  Age: 18 Year
  Sex: Female

DRUGS (9)
  1. VENLAFAXINE [Interacting]
     Active Substance: VENLAFAXINE HYDROCHLORIDE
     Dosage: 225 MG
     Dates: start: 20200901, end: 20200907
  2. VENLAFAXINE [Interacting]
     Active Substance: VENLAFAXINE HYDROCHLORIDE
     Dosage: UNIT DOSE:150 MG ,FOR 1.5 YEARS
     Dates: end: 20200831
  3. VENLAFAXINE [Interacting]
     Active Substance: VENLAFAXINE HYDROCHLORIDE
     Dosage: 75 MG ,ADRS OCCUR AT THIS DOSE
     Dates: start: 20200918, end: 20200921
  4. VENLAFAXINE [Interacting]
     Active Substance: VENLAFAXINE HYDROCHLORIDE
     Dosage: 18.75 MG
     Dates: start: 20200928
  5. VALPROAT [Concomitant]
     Active Substance: VALPROATE SODIUM
     Dosage: 150 MG ,FOR A LONG TIME
     Dates: end: 20200824
  6. VENLAFAXINE [Interacting]
     Active Substance: VENLAFAXINE HYDROCHLORIDE
     Dosage: 37.5 MG
     Dates: start: 20200923, end: 20200927
  7. BUPROPION. [Interacting]
     Active Substance: BUPROPION
     Dosage: 150 MG
     Dates: start: 20200908, end: 20200914
  8. BUPROPION. [Suspect]
     Active Substance: BUPROPION
     Dosage: 300 MG
     Dates: start: 20200915
  9. VENLAFAXINE [Interacting]
     Active Substance: VENLAFAXINE HYDROCHLORIDE
     Dosage: 150 MG
     Dates: start: 20200908, end: 20200917

REACTIONS (10)
  - Drug withdrawal syndrome [Recovered/Resolved]
  - Sleep disorder [Recovered/Resolved]
  - Malaise [Recovered/Resolved]
  - Crying [Recovered/Resolved]
  - Nausea [Recovered/Resolved]
  - Feeling abnormal [Recovered/Resolved]
  - Eating disorder [Recovered/Resolved]
  - Head discomfort [Recovered/Resolved]
  - Chest discomfort [Recovered/Resolved]
  - Drug interaction [Unknown]

NARRATIVE: CASE EVENT DATE: 20200922
